FAERS Safety Report 5405288-6 (Version None)
Quarter: 2007Q3

REPORT INFORMATION
  Report Type: 
  Country: None (occurrence: None)
  Receive Date: 20070803
  Receipt Date: 20070727
  Transmission Date: 20080115
  Serious: Yes (Hospitalization)
  Sender: FDA-Public Use
  Company Number: B0471752A

PATIENT
  Age: 35 Year
  Sex: Male
  Weight: 75 kg

DRUGS (1)
  1. MALARONE [Suspect]
     Indication: MALARIA PROPHYLAXIS
     Dosage: 1TABS PER DAY
     Route: 048
     Dates: start: 20070502, end: 20070510

REACTIONS (3)
  - ANGIOEDEMA [None]
  - DYSPHONIA [None]
  - URTICARIA [None]
